FAERS Safety Report 5674054-9 (Version None)
Quarter: 2008Q1

REPORT INFORMATION
  Report Type: 
  Country: None (occurrence: None)
  Receive Date: 20080317
  Receipt Date: 20080229
  Transmission Date: 20080703
  Serious: Yes (Other)
  Sender: FDA-Public Use
  Company Number: A-CH2008-19446

PATIENT
  Age: 12 Year
  Sex: Male

DRUGS (2)
  1. TRACLEER [Suspect]
     Indication: PULMONARY HYPERTENSION
     Dosage: 62.5 MG, BID, ORAL; 32.25 MG, BID, ORAL
     Route: 048
     Dates: start: 20071220, end: 20080122
  2. TRACLEER [Suspect]
     Indication: PULMONARY HYPERTENSION
     Dosage: 62.5 MG, BID, ORAL; 32.25 MG, BID, ORAL
     Route: 048
     Dates: start: 20080123

REACTIONS (3)
  - ABNORMAL BEHAVIOUR [None]
  - SOCIAL PROBLEM [None]
  - SUICIDAL IDEATION [None]
